FAERS Safety Report 7581040-0 (Version None)
Quarter: 2011Q2

REPORT INFORMATION
  Report Type: 
  Country: None (occurrence: None)
  Receive Date: 20110629
  Receipt Date: 20110623
  Transmission Date: 20111010
  Serious: Yes (Other)
  Sender: FDA-Public Use
  Company Number: US-ABBOTT-11P-163-0834382-00

PATIENT
  Sex: Female
  Weight: 63.56 kg

DRUGS (8)
  1. HUMIRA [Suspect]
     Indication: CROHN'S DISEASE
     Dates: start: 20100101
  2. PROMETHAZINE [Concomitant]
     Indication: PROPHYLAXIS OF NAUSEA AND VOMITING
  3. FIBER [Concomitant]
     Indication: CONSTIPATION
  4. METOCLOPRAMIDE [Concomitant]
     Indication: ABDOMINAL DISCOMFORT
  5. NEXIUM [Concomitant]
     Indication: DYSPEPSIA
  6. COLACE [Concomitant]
     Indication: CONSTIPATION PROPHYLAXIS
  7. SIMVASTATIN [Concomitant]
     Indication: BLOOD CHOLESTEROL INCREASED
  8. ZOLOFT [Concomitant]
     Indication: DEPRESSION

REACTIONS (5)
  - INTESTINAL PROLAPSE [None]
  - INJECTION SITE PAIN [None]
  - HAEMORRHOIDS [None]
  - INJECTION SITE URTICARIA [None]
  - INJECTION SITE PRURITUS [None]
